FAERS Safety Report 8112994 (Version 4)
Quarter: 2013Q2

REPORT INFORMATION
  Report Type: Report from Study
  Country: US (occurrence: US)
  Receive Date: 20110830
  Receipt Date: 20130503
  Transmission Date: 20140414
  Serious: Yes (Hospitalization)
  Sender: FDA-Public Use
  Company Number: US-UCBSA-039521

PATIENT
  Age: 30 Year
  Sex: Female
  Weight: 59.09 kg

DRUGS (28)
  1. CIMZIA [Suspect]
     Indication: CROHN^S DISEASE
     Route: 058
     Dates: start: 20101013
  2. ORTHO TRICYCLEN [Concomitant]
     Indication: ORAL CONTRACEPTION
     Dosage: 1 TABLET, NIGHT AT BED TIME
     Route: 048
  3. LOVENOX [Concomitant]
     Dosage: STRENGTH: 100 MG/ML, TOTAL DAILY DOSE: 90 MG
     Route: 058
  4. COUMADIN [Concomitant]
     Dosage: TOTAL DIALY DOSE: 7.5 MG
  5. ALBUTEROL [Concomitant]
     Dosage: 2 PUFFS FOUR TIMES DAILY
  6. FENTANYL [Concomitant]
     Dosage: 75 MCG AS DIRECTED
     Route: 062
  7. FENTANYL [Concomitant]
     Dosage: 50 MCG/HR, EXTENDED RELEASE, 1 PATCH APPLY TO SKIN EVERY 72 HOURS
  8. FENTANYL [Concomitant]
     Dosage: 12 MCG/HR, (EXTENDED RELEASE) 1 PATCH APPLY TO SKIN
  9. VALCYTE [Concomitant]
     Dosage: 450 MG TWO TWICE DAILY
     Route: 048
  10. FONDAPARINUX [Concomitant]
     Dosage: 2.5 MG/0.5 ML SUBCUTANEOUS SOLUTION, EVERY DAY
     Route: 058
  11. HYDROMORPHONE [Concomitant]
     Indication: PAIN
     Dosage: 2 MG, EVERY 4-6 HOURS
     Route: 048
  12. HYDROMORPHONE [Concomitant]
     Indication: PAIN
     Dosage: STRENGTH:2 MG,(4-8 MG EVERY  4 HOURS)
     Route: 048
  13. HYDROMORPHONE [Concomitant]
     Indication: PAIN
     Dosage: 2 MG, AS NECESSARY
     Route: 048
  14. CLONAZEPAM [Concomitant]
  15. MULTIVITAMINS [Concomitant]
  16. NORCO [Concomitant]
     Indication: PAIN
     Dosage: 5 MG-325 MG (1-2 TABLETS EVERY 6 HRS)
     Route: 048
     Dates: start: 201103
  17. ENTOCORT EC [Concomitant]
     Dosage: STRENGTH: 3 MG, 3 CAPSULES (EXTENDED RELEASE)
     Route: 048
     Dates: start: 201103
  18. VITAMIN B12 [Concomitant]
     Dosage: 1 CC
     Route: 030
     Dates: start: 201103
  19. VITAMIN B12 [Concomitant]
     Dosage: STRENGTH: 1000 MCG/ML
     Route: 030
  20. FLAGYL [Concomitant]
     Dates: start: 1998, end: 2002
  21. FLAGYL [Concomitant]
     Route: 048
     Dates: start: 201103
  22. 6-MP [Concomitant]
     Dates: start: 1997, end: 2003
  23. 6-MP [Concomitant]
     Dosage: 75 MG (EVERY MORNING)
     Route: 048
     Dates: start: 201103
  24. COUMADIN [Concomitant]
     Dosage: STRENGTH:5 MG (TAKE 7.5MG TODAY AND THEN AS DIRECTED BY THE COUMADIN CLINIC)
     Route: 048
     Dates: start: 20110307
  25. KLONOPIN [Concomitant]
     Indication: ANXIETY
     Dosage: AS NECESSARY
     Route: 048
     Dates: start: 201104
  26. KLONOPIN [Concomitant]
     Indication: ANXIETY
     Dosage: 1/2 TABLET EVERY AM AND 1 TABLET EVERY NIGHT
     Route: 048
     Dates: start: 201104
  27. ONDANSETRON [Concomitant]
     Route: 048
     Dates: start: 201104
  28. PAROXETINE [Concomitant]
     Route: 048
     Dates: start: 201104

REACTIONS (3)
  - Portal vein thrombosis [Recovered/Resolved]
  - Cytomegalovirus infection [Recovered/Resolved]
  - Crohn^s disease [Recovered/Resolved]
